FAERS Safety Report 7505385-5 (Version None)
Quarter: 2011Q2

REPORT INFORMATION
  Report Type: 
  Country: None (occurrence: None)
  Receive Date: 20110526
  Receipt Date: 20091122
  Transmission Date: 20111010
  Serious: Yes (Death, Other)
  Sender: FDA-Public Use
  Company Number: US-BAYER-200940221NA

PATIENT
  Age: 16 Year
  Sex: Male
  Weight: 52 kg

DRUGS (19)
  1. FORANE [Concomitant]
     Dosage: UNK
     Route: 042
     Dates: start: 20010111, end: 20010111
  2. CRYOPRECIPITATES [Concomitant]
     Dosage: 1 U, UNK
     Route: 042
     Dates: start: 20010111, end: 20010111
  3. TRASYLOL [Suspect]
     Indication: TRICUSPID VALVE REPAIR
     Dosage: 100 ML (LOADING DOSE)
     Route: 042
     Dates: start: 20010111, end: 20010111
  4. SODIUM BICARBONATE [Concomitant]
     Dosage: 15 MEQ, UNK
     Route: 042
     Dates: start: 20010111, end: 20010111
  5. PROTAMINE SULFATE [Concomitant]
     Dosage: UNK
     Route: 042
     Dates: start: 20010111, end: 20010111
  6. CALCIUM CHLORIDE [Concomitant]
     Dosage: UNK
     Route: 042
     Dates: start: 20010111, end: 20010111
  7. PRIMACOR [Concomitant]
     Dosage: UNK
     Route: 042
     Dates: start: 20010111, end: 20010111
  8. FRESH FROZEN PLASMA [Concomitant]
     Dosage: 1 U, UNK
     Route: 042
     Dates: start: 20010111, end: 20010111
  9. ACETYLSALICYLIC ACID SRT [Concomitant]
     Dosage: 81 MG, QD
     Route: 048
  10. MANNITOL [Concomitant]
     Dosage: 25 G, UNK
     Route: 042
     Dates: start: 20010111, end: 20010111
  11. RED BLOOD CELLS, CONCENTRATED [Concomitant]
     Dosage: 1 U, UNK
     Route: 042
     Dates: start: 20010111, end: 20010111
  12. TRASYLOL [Suspect]
     Indication: SYSTEMIC-PULMONARY ARTERY SHUNT
     Dosage: 100 ML, (CARDIOPULMONARY BYPASS PRIME)
     Route: 042
     Dates: start: 20010111, end: 20010111
  13. HEPARIN [Concomitant]
     Dosage: 20000 U, UNK
     Route: 042
     Dates: start: 20010111, end: 20010111
  14. FENTANYL [Concomitant]
     Dosage: UNK
     Route: 042
     Dates: start: 20010111, end: 20010111
  15. DOBUTAMINE HYDROCHLORIDE [Concomitant]
     Dosage: UNK (TITRATED)
     Route: 042
     Dates: start: 20010111, end: 20010111
  16. TRASYLOL [Suspect]
     Indication: ATRIAL SEPTAL DEFECT REPAIR
     Dosage: 25 ML/HR (INFUSION)
     Route: 042
     Dates: start: 20010111, end: 20010111
  17. DIGOXIN [Concomitant]
     Dosage: 70 MCG QD
     Route: 048
  18. ALBUMIN (HUMAN) [Concomitant]
     Dosage: UNK
     Route: 042
     Dates: start: 20010111, end: 20010111
  19. PLATELETS [Concomitant]
     Dosage: 1 U, UNK
     Route: 042
     Dates: start: 20010111, end: 20010111

REACTIONS (13)
  - RENAL INJURY [None]
  - FEAR [None]
  - RENAL FAILURE [None]
  - STRESS [None]
  - UNEVALUABLE EVENT [None]
  - ANHEDONIA [None]
  - ANXIETY [None]
  - INJURY [None]
  - MULTI-ORGAN FAILURE [None]
  - RENAL IMPAIRMENT [None]
  - EMOTIONAL DISTRESS [None]
  - PAIN [None]
  - DEATH [None]
